FAERS Safety Report 21050564 (Version 2)
Quarter: 2022Q3

REPORT INFORMATION
  Report Type: Spontaneous
  Country: JP (occurrence: JP)
  Receive Date: 20220707
  Receipt Date: 20220722
  Transmission Date: 20221026
  Serious: Yes (Hospitalization)
  Sender: FDA-Public Use
  Company Number: JP-NOVOPROD-934364

PATIENT
  Age: 9 Decade
  Sex: Female

DRUGS (3)
  1. OZEMPIC [Suspect]
     Active Substance: SEMAGLUTIDE
     Indication: Type 2 diabetes mellitus
     Dosage: 0.25 MG, QW
     Route: 058
     Dates: start: 20220608
  2. OZEMPIC [Suspect]
     Active Substance: SEMAGLUTIDE
     Dosage: 0.25 MG, QW, SECOND DOSE
     Route: 058
     Dates: start: 20220615, end: 20220615
  3. CELECOXIB [Suspect]
     Active Substance: CELECOXIB
     Indication: Chondrocalcinosis pyrophosphate
     Dosage: UNK
     Route: 048
     Dates: start: 20220606

REACTIONS (1)
  - Rash [Recovering/Resolving]

NARRATIVE: CASE EVENT DATE: 20220622
